FAERS Safety Report 14935835 (Version 1)
Quarter: 2018Q2

REPORT INFORMATION
  Report Type: Spontaneous
  Country: US (occurrence: US)
  Receive Date: 20180524
  Receipt Date: 20180524
  Transmission Date: 20180711
  Serious: No
  Sender: FDA-Public Use
  Company Number: US-GLAXOSMITHKLINE-US2018GSK088192

PATIENT
  Age: 85 Year
  Sex: Male

DRUGS (1)
  1. DUTASTERIDE + TAMSULOSIN CAPSULE [Suspect]
     Active Substance: DUTASTERIDE\TAMSULOSIN HYDROCHLORIDE
     Dosage: UNK
     Dates: start: 20180118, end: 20180214

REACTIONS (5)
  - Penile burning sensation [Not Recovered/Not Resolved]
  - Burning sensation [Not Recovered/Not Resolved]
  - Painful erection [Not Recovered/Not Resolved]
  - Dyspareunia [Not Recovered/Not Resolved]
  - Anorgasmia [Not Recovered/Not Resolved]
